FAERS Safety Report 26040707 (Version 1)
Quarter: 2025Q4

REPORT INFORMATION
  Report Type: Spontaneous
  Country: US (occurrence: None)
  Receive Date: 20251112
  Receipt Date: 20251112
  Transmission Date: 20260119
  Serious: Yes (Hospitalization)
  Sender: FDA-CTU
  Company Number: None

PATIENT
  Age: 62 Year
  Sex: Female

DRUGS (1)
  1. HADLIMA [Suspect]
     Active Substance: ADALIMUMAB-BWWD
     Indication: Crohn^s disease
     Dosage: 40 MG/ML EVERY 14 DAYS SUBCUTANEOUS?
     Route: 058
     Dates: start: 20240612

REACTIONS (3)
  - Crohn^s disease [None]
  - Therapy interrupted [None]
  - Inability to afford medication [None]

NARRATIVE: CASE EVENT DATE: 20251010
